FAERS Safety Report 25472002 (Version 1)
Quarter: 2025Q2

REPORT INFORMATION
  Report Type: Spontaneous
  Country: CA (occurrence: CA)
  Receive Date: 20250624
  Receipt Date: 20250624
  Transmission Date: 20250717
  Serious: Yes (Other)
  Sender: SANDOZ
  Company Number: CA-SANDOZ-SDZ2025CA043386

PATIENT
  Age: 51 Year
  Sex: Female

DRUGS (2)
  1. ERELZI [Suspect]
     Active Substance: ETANERCEPT-SZZS
     Indication: Product used for unknown indication
     Route: 065
  2. ENBREL [Suspect]
     Active Substance: ETANERCEPT
     Indication: Ankylosing spondylitis
     Dosage: 50 MG, QW
     Route: 065

REACTIONS (4)
  - Herpes zoster [Not Recovered/Not Resolved]
  - Uveitis [Not Recovered/Not Resolved]
  - Therapy change [Not Recovered/Not Resolved]
  - Treatment failure [Not Recovered/Not Resolved]
